FAERS Safety Report 10199013 (Version 1)
Quarter: 2014Q2

REPORT INFORMATION
  Report Type: Spontaneous
  Country: US (occurrence: US)
  Receive Date: 20140527
  Receipt Date: 20140527
  Transmission Date: 20141212
  Serious: No
  Sender: FDA-Public Use
  Company Number: US-NOVEN-13US007856

PATIENT
  Age: 12 Year
  Sex: Male
  Weight: 39.91 kg

DRUGS (2)
  1. DAYTRANA [Suspect]
     Indication: ATTENTION DEFICIT/HYPERACTIVITY DISORDER
     Dosage: 15 MG, QD
     Route: 062
     Dates: start: 20131002
  2. ALLERGY                            /00000402/ [Concomitant]
     Indication: HYPERSENSITIVITY
     Dosage: UNK
     Route: 048

REACTIONS (5)
  - Incorrect drug administration duration [Not Recovered/Not Resolved]
  - Drug administered at inappropriate site [Recovered/Resolved]
  - Drug prescribing error [Not Recovered/Not Resolved]
  - Product quality issue [Recovered/Resolved]
  - No adverse event [None]
